FAERS Safety Report 7967928-7 (Version None)
Quarter: 2011Q4

REPORT INFORMATION
  Report Type: 
  Country: None (occurrence: None)
  Receive Date: 20111209
  Receipt Date: 20111007
  Transmission Date: 20120403
  Serious: Yes (Other)
  Sender: FDA-Public Use
  Company Number: US-ROCHE-1020090

PATIENT
  Sex: Female

DRUGS (4)
  1. PEGASYS [Suspect]
     Indication: HEPATITIS C
     Dates: start: 20110826
  2. ANTIBIOTICS (UNSPECIFIED) [Concomitant]
     Indication: ARTHROPOD BITE
  3. RIBAVIRIN [Suspect]
     Indication: HEPATITIS C
     Dates: start: 20110826
  4. VICTRELIS [Suspect]
     Indication: HEPATITIS C

REACTIONS (1)
  - RENAL FAILURE [None]
